FAERS Safety Report 7594534-9 (Version None)
Quarter: 2011Q2

REPORT INFORMATION
  Report Type: 
  Country: None (occurrence: None)
  Receive Date: 20110628
  Receipt Date: 20110623
  Transmission Date: 20111010
  Serious: Yes (Death)
  Sender: FDA-Public Use
  Company Number: 201110728

PATIENT
  Sex: Male

DRUGS (1)
  1. LIORESAL [Suspect]
     Indication: MUSCLE SPASTICITY
     Dosage: 420.0 MCG, DAILY, INTRATHECAL
     Route: 037

REACTIONS (6)
  - SPINAL CORD INJURY [None]
  - STAB WOUND [None]
  - DECUBITUS ULCER [None]
  - QUADRIPLEGIA [None]
  - OSTEOMYELITIS [None]
  - VICTIM OF HOMICIDE [None]
